FAERS Safety Report 8916673 (Version 2)
Quarter: 2012Q4

REPORT INFORMATION
  Report Type: 
  Country: JP (occurrence: JP)
  Receive Date: 20121120
  Receipt Date: 20121227
  Transmission Date: 20130627
  Serious: Yes (Other)
  Sender: FDA-Public Use
  Company Number: JP-VERTEX PHARMACEUTICAL INC.-2012-024782

PATIENT
  Age: 57 Year
  Sex: Female

DRUGS (4)
  1. TELAVIC [Suspect]
     Indication: CHRONIC HEPATITIS C
     Dosage: 1500 mg, qd
     Route: 048
     Dates: start: 20121102
  2. REBETOL [Suspect]
     Indication: CHRONIC HEPATITIS C
     Dosage: 600 mg, qd
     Route: 048
     Dates: start: 20121102
  3. PEGINTRON                          /01543001/ [Concomitant]
     Indication: CHRONIC HEPATITIS C
     Dosage: 1.5 ?g/kg, weekly
     Route: 058
     Dates: start: 20121102
  4. NU-LOTAN [Concomitant]
     Dosage: 50 mg, UNK
     Route: 048
     Dates: start: 20120214

REACTIONS (1)
  - Rash [Unknown]
